FAERS Safety Report 4622209-4 (Version None)
Quarter: 2005Q1

REPORT INFORMATION
  Report Type: 
  Country: None (occurrence: None)
  Receive Date: 20050322
  Receipt Date: 20050322
  Transmission Date: 20050727
  Serious: No
  Sender: FDA-Public Use
  Company Number: None

PATIENT
  Sex: Female
  Weight: 58.3 kg

DRUGS (2)
  1. GEMCITABINE [Suspect]
     Dosage: 1000 MG/M2 IV OVER 30 MIN. Q WK. X 7 CYCLE 2+:  (CYCLE = 4 WKS.)
     Route: 042
     Dates: start: 20050303
  2. GEMCITABINE [Suspect]
     Dosage: 1000 MG/M2 IV OVER 30 MIN. Q WK. X 3

REACTIONS (8)
  - ANAEMIA [None]
  - CELLULITIS [None]
  - ERYTHEMA [None]
  - OEDEMA PERIPHERAL [None]
  - PAIN [None]
  - PITTING OEDEMA [None]
  - RASH [None]
  - SKIN WARM [None]
